FAERS Safety Report 18319198 (Version 1)
Quarter: 2020Q3

REPORT INFORMATION
  Report Type: Spontaneous
  Country: US (occurrence: US)
  Receive Date: 20200928
  Receipt Date: 20200928
  Transmission Date: 20201103
  Serious: Yes (Hospitalization)
  Sender: FDA-Public Use
  Company Number: None

PATIENT
  Age: 58 Year
  Sex: Female
  Weight: 84.7 kg

DRUGS (5)
  1. AJOVY [Concomitant]
     Active Substance: FREMANEZUMAB-VFRM
     Dates: start: 20200508
  2. TOPIRAMATE 100MG TABLET [Concomitant]
  3. PROPRANOLOL [Concomitant]
     Active Substance: PROPRANOLOL HYDROCHLORIDE
  4. BOTOX 200U INJECTION [Concomitant]
  5. SUMATRIPTAN. [Suspect]
     Active Substance: SUMATRIPTAN
     Indication: MIGRAINE WITH AURA
     Route: 048

REACTIONS (4)
  - Thrombosis [None]
  - Fibromuscular dysplasia [None]
  - Renal infarct [None]
  - Embolism [None]

NARRATIVE: CASE EVENT DATE: 20200824
